FAERS Safety Report 11867971 (Version 1)
Quarter: 2015Q4

REPORT INFORMATION
  Report Type: Spontaneous
  Country: KR (occurrence: KR)
  Receive Date: 20151224
  Receipt Date: 20151224
  Transmission Date: 20160305
  Serious: Yes (Other)
  Sender: FDA-Public Use
  Company Number: ALCN2015KR008022

PATIENT
  Age: 1 Month
  Sex: Male
  Weight: 1.7 kg

DRUGS (2)
  1. MYDFRIN [Suspect]
     Active Substance: PHENYLEPHRINE HYDROCHLORIDE
     Indication: MYDRIASIS
     Route: 047
  2. MYDRIACYL [Suspect]
     Active Substance: TROPICAMIDE
     Indication: MYDRIASIS
     Route: 047

REACTIONS (1)
  - Bronchospasm [Recovered/Resolved]
